FAERS Safety Report 23832613 (Version 1)
Quarter: 2024Q2

REPORT INFORMATION
  Report Type: Spontaneous
  Country: DE (occurrence: DE)
  Receive Date: 20240508
  Receipt Date: 20240508
  Transmission Date: 20240716
  Serious: Yes (Other)
  Sender: FDA-Public Use
  Company Number: None

PATIENT
  Age: 15 Year
  Sex: Female

DRUGS (11)
  1. DOXYCYCLINE HYCLATE [Suspect]
     Active Substance: DOXYCYCLINE HYCLATE
     Dosage: 500 MG, SINGLE (ONCE)
     Route: 048
  2. CETIRIZINE HYDROCHLORIDE [Suspect]
     Active Substance: CETIRIZINE HYDROCHLORIDE
     Dosage: 30 MG, SINGLE (ONCE)
     Route: 048
  3. CETIRIZINE [Suspect]
     Active Substance: CETIRIZINE HYDROCHLORIDE
     Dosage: 80 MG, SINGLE (ONCE)
     Route: 048
  4. AMBROXOL [Suspect]
     Active Substance: AMBROXOL
     Dosage: 9 DF, SINGLE (ONCE)
     Route: 048
  5. AMOXICILLIN [Suspect]
     Active Substance: AMOXICILLIN
     Dosage: 5250 MG, SINGLE (ONCE)
     Route: 048
  6. FERROUS GLUCONATE [Suspect]
     Active Substance: FERROUS GLUCONATE
     Dosage: 2 DF, SINGLE (ONCE)
     Route: 048
  7. IBUPROFEN [Suspect]
     Active Substance: IBUPROFEN
     Dosage: 2000 MG, SINGLE (ONCE)
     Route: 048
  8. NAPROXEN [Suspect]
     Active Substance: NAPROXEN
     Dosage: 1250 MG, SINGLE (ONCE)
     Route: 048
  9. FISH OIL [Suspect]
     Active Substance: FISH OIL
     Dosage: 3 DF, SINGLE (ONCE)
     Route: 048
  10. ACETAMINOPHEN [Suspect]
     Active Substance: ACETAMINOPHEN
     Dosage: 2500 MG, SINGLE (ONCE)
     Route: 048
  11. DIETARY SUPPLEMENT\HERBALS [Suspect]
     Active Substance: DIETARY SUPPLEMENT\HERBALS
     Dosage: 3 DF, 1X/DAY
     Route: 048

REACTIONS (3)
  - Intentional overdose [Unknown]
  - Suicide attempt [Unknown]
  - Dizziness [Unknown]

NARRATIVE: CASE EVENT DATE: 20060304
